FAERS Safety Report 6154107-1 (Version None)
Quarter: 2009Q2

REPORT INFORMATION
  Report Type: 
  Country: None (occurrence: None)
  Receive Date: 20090414
  Receipt Date: 20090402
  Transmission Date: 20091009
  Serious: Yes (Hospitalization)
  Sender: FDA-Public Use
  Company Number: JP-ROCHE-626617

PATIENT
  Sex: Male

DRUGS (3)
  1. PEGASYS [Suspect]
     Indication: HEPATITIS C
     Route: 058
     Dates: start: 20070608, end: 20080312
  2. COPEGUS [Suspect]
     Indication: HEPATITIS C
     Route: 048
     Dates: start: 20070608, end: 20070904
  3. COPEGUS [Suspect]
     Route: 048
     Dates: start: 20070905, end: 20080319

REACTIONS (1)
  - EOSINOPHILIC PNEUMONIA [None]
